FAERS Safety Report 4408442-5 (Version None)
Quarter: 2004Q3

REPORT INFORMATION
  Report Type: 
  Country: None (occurrence: None)
  Receive Date: 20040722
  Receipt Date: 20040712
  Transmission Date: 20050211
  Serious: Yes (Hospitalization)
  Sender: FDA-Public Use
  Company Number: K200401030

PATIENT
  Age: 90 Year
  Sex: Female

DRUGS (12)
  1. ALTACE [Suspect]
     Indication: HYPERTENSION
     Dosage: 1 TABLET, QD, ORAL
     Route: 048
     Dates: end: 20040121
  2. HYDROCHLOROTHIAZIDE (HYDROCHLOROTHIAZIDE) 1 TABLET [Suspect]
     Indication: HYPERTENSION
     Dosage: 1 TABLET, QD, ORAL
     Route: 048
     Dates: end: 20040121
  3. ASS ^CT-ARZNEIMITTEL^ (ACETYLSALICYLIC ACID) TABLET, 100MG [Suspect]
     Indication: CORONARY ARTERY DISEASE
     Dosage: 100 MG, QD, ORAL
     Route: 048
     Dates: end: 20040121
  4. ASS ^CT-ARZNEIMITTEL^ (ACETYLSALICYLIC ACID) TABLET, 100MG [Suspect]
     Indication: CORONARY ARTERY DISEASE
     Dosage: 100 MG, QD, ORAL
     Route: 048
     Dates: start: 20040124
  5. FURANTHRIL ^MEDPHANO^ (FUROSEMIDE) [Suspect]
     Indication: HYPERTENSION
     Dosage: 40 MG, BID, ORAL
     Route: 048
     Dates: end: 20040121
  6. CORIFEO (LERCANIDIPINE HYDROCHLORIDE) TABLET [Concomitant]
  7. DIGIMERCK (DIGITOXIN) TABLET [Concomitant]
  8. LACTULOSE (LACTULOSE) SYRUP [Concomitant]
  9. MELNEURIN (MELPERONE HYDROCHLORIDE) TABLET [Concomitant]
  10. MOLSIDOMIN - SLOW RELEASE ^CT-ARZNEIMITTEL^ (MOLSIDOMINE) TABLET [Concomitant]
  11. NOVALGIN (METAMIZOLE SODIUM) TABLET [Concomitant]
  12. AMITRIPTYLINE HCL [Concomitant]

REACTIONS (5)
  - ABDOMINAL PAIN [None]
  - BLOOD PRESSURE DIASTOLIC DECREASED [None]
  - MARKEDLY REDUCED DIETARY INTAKE [None]
  - PAROTITIS [None]
  - RENAL FAILURE ACUTE [None]
